FAERS Safety Report 9552044 (Version 1)
Quarter: 2013Q3

REPORT INFORMATION
  Report Type: Spontaneous
  Country: US (occurrence: None)
  Receive Date: 20130724
  Receipt Date: 20130724
  Transmission Date: 20140515
  Serious: Yes (Other)
  Sender: FDA-Public Use
  Company Number: PHEH2013US009542

PATIENT
  Sex: Female

DRUGS (5)
  1. GLEEVEC (IMATINIB) UNKNOWN [Suspect]
     Indication: GASTROINTESTINAL STROMAL TUMOUR
     Dates: start: 201211
  2. GLEEVEC (IMATINIB) UNKNOWN [Concomitant]
  3. COUMADINE (WARFARIN SODIUM) [Concomitant]
  4. GINSENG (GINGSENG NOS) [Concomitant]
  5. ECHINACEA ANGUSTIFOLIA [Concomitant]

REACTIONS (5)
  - Gastrointestinal stromal tumour [None]
  - Neoplasm recurrence [None]
  - Haemorrhage [None]
  - Periorbital oedema [None]
  - White blood cell count decreased [None]
